FAERS Safety Report 5607996-0 (Version None)
Quarter: 2008Q1

REPORT INFORMATION
  Report Type: 
  Country: None (occurrence: None)
  Receive Date: 20080130
  Receipt Date: 20080122
  Transmission Date: 20080703
  Serious: Yes (Hospitalization)
  Sender: FDA-Public Use
  Company Number: B0504920A

PATIENT
  Age: 37 Year
  Sex: Male
  Weight: 58 kg

DRUGS (6)
  1. LAPATINIB [Suspect]
     Indication: BREAST CANCER METASTATIC
     Dosage: 1250MG PER DAY
     Route: 048
     Dates: start: 20071228, end: 20080112
  2. CAPECITABINE [Suspect]
     Indication: BREAST CANCER METASTATIC
     Dosage: 2000MGM2 PER DAY
     Route: 048
     Dates: start: 20071228, end: 20080112
  3. METHYLPREDNISOLONE [Concomitant]
     Indication: EYE PAIN
     Dosage: 8MG TWICE PER DAY
     Route: 048
     Dates: start: 20080118
  4. CRAVIT [Concomitant]
     Indication: PYREXIA
     Dosage: 500MG PER DAY
     Route: 048
     Dates: start: 20080118
  5. CODEINE PHOSPHATE [Concomitant]
     Indication: COUGH
     Dosage: 30MG PER DAY
     Route: 048
     Dates: start: 20080118
  6. FUROSEMIDE [Concomitant]
     Indication: PLEURAL EFFUSION
     Dosage: 40MG TWICE PER DAY
     Route: 048
     Dates: start: 20080120

REACTIONS (5)
  - BACK PAIN [None]
  - DYSPNOEA [None]
  - EYE PAIN [None]
  - PLEURAL EFFUSION [None]
  - PYREXIA [None]
